FAERS Safety Report 4485869-7 (Version None)
Quarter: 2004Q3

REPORT INFORMATION
  Report Type: 
  Country: None (occurrence: None)
  Receive Date: 20040921
  Receipt Date: 20030919
  Transmission Date: 20050211
  Serious: Yes (Death)
  Sender: FDA-Public Use
  Company Number: 163-20785-03090607

PATIENT
  Age: 46 Year
  Sex: Female

DRUGS (5)
  1. THALOMID [Suspect]
     Indication: GLIOMA
     Dosage: 150 MG, DAILY, ORAL
     Route: 048
     Dates: end: 20030906
  2. CELEBREX [Suspect]
     Indication: GLIOMA
     Dosage: 200 MG, BID, ORAL
     Route: 048
     Dates: end: 20030906
  3. CYCLOPHOSPHAMIDE [Suspect]
     Indication: GLIOMA
     Dosage: 50 MG, DAILY, ORAL
     Route: 048
     Dates: end: 20030906
  4. ETOPOSIDE [Suspect]
     Indication: GLIOMA
     Dosage: 50 MG, DAILY, ORAL
     Route: 048
     Dates: end: 20030821
  5. DECADRON [Concomitant]

REACTIONS (2)
  - DEATH [None]
  - DISEASE PROGRESSION [None]
